FAERS Safety Report 18347457 (Version 3)
Quarter: 2020Q4

REPORT INFORMATION
  Report Type: Report from Study
  Country: US (occurrence: US)
  Receive Date: 20201006
  Receipt Date: 20201216
  Transmission Date: 20210114
  Serious: Yes (Other)
  Sender: FDA-Public Use
  Company Number: NVSC2020US264089

PATIENT
  Sex: Male

DRUGS (1)
  1. COSENTYX [Suspect]
     Active Substance: SECUKINUMAB
     Indication: PSORIATIC ARTHROPATHY
     Dosage: 150 MG, QW (OTHER: ONCE A WEEK FOR 5 WEEKS)
     Route: 058

REACTIONS (8)
  - Pain [Unknown]
  - COVID-19 [Unknown]
  - Nasopharyngitis [Unknown]
  - Psoriasis [Unknown]
  - Diarrhoea [Unknown]
  - Ageusia [Unknown]
  - Sinusitis [Unknown]
  - Lethargy [Unknown]
